FAERS Safety Report 17984941 (Version 1)
Quarter: 2020Q3

REPORT INFORMATION
  Report Type: Spontaneous
  Country: MY (occurrence: MY)
  Receive Date: 20200706
  Receipt Date: 20200706
  Transmission Date: 20201103
  Serious: Yes (Hospitalization, Other)
  Sender: FDA-Public Use
  Company Number: MY-ADMA BIOLOGICS INC.-MY-2020ADM000003

PATIENT
  Age: 3 Year
  Sex: Male

DRUGS (1)
  1. IMMUNE GLOBULIN INTRAVENOUS (IMMUNOGLOBULIN G HUMAN) [Suspect]
     Active Substance: HUMAN IMMUNOGLOBULIN G
     Indication: PNEUMONIA ADENOVIRAL
     Dosage: 10 G (1.17 G/KG)

REACTIONS (2)
  - Moyamoya disease [Unknown]
  - Cerebrovascular accident [Recovering/Resolving]
